FAERS Safety Report 25246005 (Version 1)
Quarter: 2025Q2

REPORT INFORMATION
  Report Type: Spontaneous
  Country: SE (occurrence: SE)
  Receive Date: 20250428
  Receipt Date: 20250428
  Transmission Date: 20250716
  Serious: Yes (Other)
  Sender: AMGEN
  Company Number: SE-AMGEN-SWESP2025080270

PATIENT
  Age: 76 Year
  Sex: Female

DRUGS (1)
  1. PROLIA [Suspect]
     Active Substance: DENOSUMAB
     Indication: Osteoporosis
     Route: 065

REACTIONS (7)
  - Panniculitis [Unknown]
  - Coeliac disease [Unknown]
  - Haemochromatosis [Unknown]
  - Functional gastrointestinal disorder [Unknown]
  - Headache [Unknown]
  - Sciatica [Unknown]
  - Spinal stenosis [Unknown]
